FAERS Safety Report 12547952 (Version 1)
Quarter: 2016Q3

REPORT INFORMATION
  Report Type: Spontaneous
  Country: US (occurrence: None)
  Receive Date: 20160711
  Receipt Date: 20160711
  Transmission Date: 20161109
  Serious: Yes (Life-Threatening)
  Sender: FDA-Public Use
  Company Number: None

PATIENT
  Age: 44 Year
  Sex: Female
  Weight: 63.5 kg

DRUGS (1)
  1. NEUTROGENA ON-THE-SPOT ACNE TREATMENT VANISHING FORMULA [Suspect]
     Active Substance: BENZOYL PEROXIDE
     Indication: ACNE
     Dosage: 0.75 OUNCE (S) AS NEEDED APPLIED TO A SURFACE, USUALLY THE SKIN
     Dates: start: 20160708, end: 20160708

REACTIONS (4)
  - Dyspnoea [None]
  - Throat irritation [None]
  - Pruritus [None]
  - Heart rate increased [None]

NARRATIVE: CASE EVENT DATE: 20160708
